FAERS Safety Report 4497820-4 (Version None)
Quarter: 2004Q4

REPORT INFORMATION
  Report Type: 
  Country: None (occurrence: None)
  Receive Date: 20041110
  Receipt Date: 20031219
  Transmission Date: 20050328
  Serious: Yes (Hospitalization)
  Sender: FDA-Public Use
  Company Number: US-GLAXOSMITHKLINE-A0497610A

PATIENT
  Age: 43 Year
  Sex: Male

DRUGS (3)
  1. PAXIL [Suspect]
     Indication: DEPRESSION
     Dosage: 20MG TWICE PER DAY
     Route: 048
     Dates: start: 19970101
  2. TRAZODONE HCL [Concomitant]
  3. PRINIVIL [Concomitant]

REACTIONS (7)
  - ANGER [None]
  - DEPRESSION [None]
  - DRUG WITHDRAWAL SYNDROME [None]
  - EUPHORIC MOOD [None]
  - HALLUCINATION, AUDITORY [None]
  - PARAESTHESIA [None]
  - SUICIDAL IDEATION [None]
